FAERS Safety Report 19412352 (Version 1)
Quarter: 2021Q2

REPORT INFORMATION
  Report Type: Spontaneous
  Country: DE (occurrence: DE)
  Receive Date: 20210614
  Receipt Date: 20210614
  Transmission Date: 20210717
  Serious: Yes (Hospitalization, Other)
  Sender: FDA-Public Use
  Company Number: DE-SA-2021SA185009

PATIENT
  Age: 35 Year
  Sex: Female

DRUGS (2)
  1. INSULIN HUMAN [Suspect]
     Active Substance: INSULIN HUMAN
     Dosage: ACCORDING TO THE SCHEME
     Route: 058
  2. LANTUS [Suspect]
     Active Substance: INSULIN GLARGINE
     Dosage: 12 IU, QD
     Route: 058

REACTIONS (4)
  - Loss of consciousness [Unknown]
  - Labelled drug-drug interaction medication error [Unknown]
  - Diabetic coma [Unknown]
  - Hypoglycaemia [Unknown]
